FAERS Safety Report 9496853 (Version 3)
Quarter: 2013Q4

REPORT INFORMATION
  Report Type: Spontaneous
  Country: FR (occurrence: FR)
  Receive Date: 20130904
  Receipt Date: 20131108
  Transmission Date: 20140711
  Serious: Yes (Hospitalization)
  Sender: FDA-Public Use
  Company Number: FR-PFIZER INC-2013251649

PATIENT
  Age: 49 Year
  Sex: Male

DRUGS (11)
  1. ADVIL [Suspect]
     Indication: INFLUENZA LIKE ILLNESS
     Dosage: 2 DOSAGE FORMS (DFS) DAILY
     Route: 048
     Dates: start: 201306, end: 20130624
  2. OMEPRAZOLE [Suspect]
     Indication: PROPHYLAXIS
     Dosage: 1 DF, 1X/DAY
     Route: 048
     Dates: start: 20130621, end: 201306
  3. BACTRIM [Suspect]
     Indication: GENITAL LESION
     Dosage: UNK
     Route: 048
     Dates: start: 20130614, end: 20130623
  4. FERVEX [Suspect]
     Indication: INFLUENZA LIKE ILLNESS
     Dosage: 3 DF, 1X/DAY
     Route: 048
     Dates: start: 20130621, end: 201306
  5. VOGALENE [Suspect]
     Indication: NAUSEA
     Dosage: FROM 4 TO 6 TABLET A DAY
     Route: 048
     Dates: start: 20130621, end: 201306
  6. DOLIRHUME [Suspect]
     Indication: HEADACHE
     Dosage: UNK
     Dates: start: 20130619, end: 20130619
  7. DOLIRHUME [Suspect]
     Indication: CHILLS
  8. KARDEGIC [Concomitant]
  9. TAHOR [Concomitant]
  10. CARDENSIEL [Concomitant]
  11. PARACETAMOL [Concomitant]

REACTIONS (14)
  - Rash maculo-papular [Recovered/Resolved]
  - Pruritus [Recovered/Resolved]
  - Oral disorder [Recovered/Resolved]
  - Conjunctival abrasion [Recovered/Resolved]
  - Face oedema [Recovered/Resolved]
  - Erythema [Recovered/Resolved]
  - Cholestasis [Recovered/Resolved]
  - Drug reaction with eosinophilia and systemic symptoms [Recovered/Resolved]
  - Headache [Unknown]
  - Chills [Unknown]
  - Accidental exposure to product [Unknown]
  - Nausea [Unknown]
  - Vomiting [Unknown]
  - Pyrexia [Unknown]
